FAERS Safety Report 7966130-2 (Version None)
Quarter: 2011Q4

REPORT INFORMATION
  Report Type: 
  Country: None (occurrence: None)
  Receive Date: 20111208
  Receipt Date: 20111129
  Transmission Date: 20120403
  Serious: Yes (Death)
  Sender: FDA-Public Use
  Company Number: JP-CELGENEUS-087-50794-11070669

PATIENT
  Sex: Female
  Weight: 42 kg

DRUGS (21)
  1. OMEPRAZOLE [Concomitant]
     Dosage: 10 MILLIGRAM
     Route: 048
     Dates: end: 20110618
  2. ZOLPIDEM [Concomitant]
     Dosage: 5 MILLIGRAM
     Route: 048
     Dates: end: 20110617
  3. MAGMITT [Concomitant]
     Dosage: 1980 MILLIGRAM
     Route: 048
     Dates: end: 20110618
  4. PRORENAL [Concomitant]
     Dosage: 15 MILLIGRAM
     Route: 048
     Dates: start: 20110609, end: 20110617
  5. DORIPENEM MONOHYDRATE [Concomitant]
     Dosage: 1.5 GRAM
     Route: 041
     Dates: start: 20110618, end: 20110626
  6. VENOGLOBULIN [Concomitant]
     Dosage: 5 GRAM
     Route: 041
     Dates: start: 20110618, end: 20110619
  7. EXJADE [Concomitant]
     Dosage: 1000 MILLIGRAM
     Route: 048
     Dates: end: 20110618
  8. PRIMPERAN TAB [Concomitant]
     Dosage: 15 MILLIGRAM
     Route: 048
     Dates: end: 20110618
  9. ALENDRONATE SODIUM [Concomitant]
     Dosage: 35 MICROGRAM
     Route: 048
     Dates: end: 20110615
  10. LOXONIN [Concomitant]
     Dosage: 60 MILLIGRAM
     Route: 048
     Dates: end: 20110618
  11. GRAN [Concomitant]
     Dosage: 150 MICROGRAM
     Route: 041
     Dates: start: 20110615, end: 20110622
  12. VIDAZA [Suspect]
     Dosage: 75 MILLIGRAM/SQ. METER
     Route: 058
     Dates: start: 20110512, end: 20110518
  13. MUCOSTA [Concomitant]
     Dosage: 100 MILLIGRAM
     Route: 048
     Dates: end: 20110618
  14. GRANISETRON HCL [Concomitant]
     Dosage: 3 MILLIGRAM
     Route: 041
     Dates: start: 20110512, end: 20110515
  15. PRIMOBOLAN-DEPOT INJ [Concomitant]
     Dosage: 15 MILLIGRAM
     Route: 048
     Dates: end: 20110618
  16. ALFAROL [Concomitant]
     Dosage: 1 MICROGRAM
     Route: 048
     Dates: end: 20110618
  17. VANCOMYCIN HCL [Concomitant]
     Dosage: 1 GRAM
     Route: 041
     Dates: start: 20110618, end: 20110625
  18. PHENYTOIN SODIUM CAP [Concomitant]
     Dosage: 125 MILLIGRAM
     Route: 041
     Dates: start: 20110618, end: 20110622
  19. VIRUHEXAL [Concomitant]
     Dosage: 400 MILLIGRAM
     Route: 041
     Dates: start: 20110618, end: 20110626
  20. AMBISOME [Concomitant]
     Dosage: 200 MILLIGRAM
     Route: 041
     Dates: start: 20110619, end: 20110625
  21. GRAN [Concomitant]
     Dosage: 75 MICROGRAM
     Route: 041
     Dates: start: 20110606, end: 20110607

REACTIONS (5)
  - NEUTROPENIA [None]
  - PNEUMONIA [None]
  - LEUKOPENIA [None]
  - MENINGITIS BACTERIAL [None]
  - ACUTE SINUSITIS [None]
